FAERS Safety Report 4796466-8 (Version None)
Quarter: 2005Q4

REPORT INFORMATION
  Report Type: 
  Country: None (occurrence: None)
  Receive Date: 20051011
  Receipt Date: 20050405
  Transmission Date: 20060501
  Serious: Yes (Hospitalization, Other)
  Sender: FDA-Public Use
  Company Number: 2005-04-0229

PATIENT
  Age: 75 Year
  Sex: Male

DRUGS (2)
  1. TEMODAR [Suspect]
     Indication: GLIOBLASTOMA MULTIFORME
     Dosage: 150MG/M2 QD ORAL
     Route: 048
     Dates: start: 20050101
  2. RADIATION THERAPY NO DOSE FORM [Suspect]
     Indication: GLIOBLASTOMA MULTIFORME
     Dosage: X-RAY THERAPY
     Dates: start: 20050101

REACTIONS (4)
  - ACCIDENTAL OVERDOSE [None]
  - DISEASE PROGRESSION [None]
  - HAEMATURIA [None]
  - PLATELET COUNT DECREASED [None]
